FAERS Safety Report 17813003 (Version 1)
Quarter: 2020Q2

REPORT INFORMATION
  Report Type: Report from Study
  Country: GB (occurrence: GB)
  Receive Date: 20200521
  Receipt Date: 20200521
  Transmission Date: 20200714
  Serious: Yes (Other)
  Sender: FDA-Public Use
  Company Number: NVSC2020GB139161

PATIENT
  Sex: Male

DRUGS (1)
  1. HYRIMOZ [Suspect]
     Active Substance: ADALIMUMAB-ADAZ
     Indication: COLITIS ULCERATIVE
     Dosage: 1 DF, Q2W
     Route: 058

REACTIONS (3)
  - Abdominal discomfort [Recovering/Resolving]
  - Colitis ulcerative [Recovering/Resolving]
  - Headache [Recovering/Resolving]
